FAERS Safety Report 8390384-4 (Version None)
Quarter: 2012Q2

REPORT INFORMATION
  Report Type: 
  Country: None (occurrence: None)
  Receive Date: 20120529
  Receipt Date: 20120521
  Transmission Date: 20120825
  Serious: Yes (Other)
  Sender: FDA-Public Use
  Company Number: US-JNJFOC-20120517145

PATIENT
  Age: 48 Year
  Sex: Male
  Weight: 113.4 kg

DRUGS (3)
  1. NEOSPORIN [Suspect]
     Indication: SKIN LESION
     Dosage: A LITTLE MORE THAN A PEA SIZED AMOUNT
     Route: 061
  2. METFORMIN HCL [Concomitant]
     Indication: DIABETES MELLITUS
     Route: 065
  3. GLYBURIDE [Concomitant]
     Indication: DIABETES MELLITUS
     Route: 065

REACTIONS (3)
  - SKIN ULCER [None]
  - WHITE BLOOD CELL COUNT INCREASED [None]
  - OFF LABEL USE [None]
